FAERS Safety Report 9395936 (Version 2)
Quarter: 2013Q3

REPORT INFORMATION
  Report Type: Report from Study
  Country: MX (occurrence: MX)
  Receive Date: 20130711
  Receipt Date: 20130731
  Transmission Date: 20140515
  Serious: Yes (Other)
  Sender: FDA-Public Use
  Company Number: PHHY2013MX072587

PATIENT
  Age: 73 Year
  Sex: Female

DRUGS (6)
  1. EXELON PATCH [Suspect]
     Indication: DEMENTIA ALZHEIMER^S TYPE
     Dosage: 9.5 MG, DAILY
     Route: 062
     Dates: start: 201201, end: 201202
  2. EXELON PATCH [Suspect]
     Dosage: 4.6 MG, DAILY
     Route: 062
     Dates: start: 201202
  3. EXELON PATCH [Suspect]
     Dosage: 4.6 MG, DAILY
     Route: 062
  4. FLUOXETINE [Concomitant]
     Indication: DEPRESSION
     Dosage: 1 DF, DAILY
     Dates: start: 201212
  5. SIFROL [Concomitant]
     Indication: RESTLESS LEGS SYNDROME
     Dosage: 1 DF, DAILY
     Dates: start: 201305
  6. OMEPRAZOLE [Concomitant]
     Indication: GASTRITIS
     Dosage: 1 DF, DAILY
     Dates: start: 201005

REACTIONS (8)
  - Neurodegenerative disorder [Not Recovered/Not Resolved]
  - Arteriosclerosis [Not Recovered/Not Resolved]
  - Infarction [Unknown]
  - Disorientation [Recovering/Resolving]
  - Incoherent [Recovering/Resolving]
  - Aphasia [Not Recovered/Not Resolved]
  - Speech disorder [Not Recovered/Not Resolved]
  - Drug ineffective [Unknown]
